FAERS Safety Report 5827278-1 (Version None)
Quarter: 2008Q4

REPORT INFORMATION
  Report Type: 
  Country: None (occurrence: None)
  Receive Date: 20080730
  Receipt Date: 20080720
  Transmission Date: 20090506
  Serious: Yes (Other)
  Sender: FDA-Public Use
  Company Number: US-ROCHE-576849

PATIENT
  Sex: Female

DRUGS (4)
  1. PEG-INTERFERON A-2A (RO 25-8310) [Suspect]
     Route: 065
     Dates: start: 20070817, end: 20080229
  2. RIBAVIRIN [Suspect]
     Route: 065
     Dates: start: 20070817, end: 20080229
  3. INSULIN [Concomitant]
  4. METFORMIN HCL [Concomitant]

REACTIONS (6)
  - BRONCHITIS [None]
  - CHOLELITHIASIS [None]
  - DEPRESSED MOOD [None]
  - DIARRHOEA [None]
  - PAIN [None]
  - VOMITING [None]
